FAERS Safety Report 21406897 (Version 1)
Quarter: 2022Q4

REPORT INFORMATION
  Report Type: Spontaneous
  Country: US (occurrence: None)
  Receive Date: 20221003
  Receipt Date: 20221003
  Transmission Date: 20230113
  Serious: Yes (Other)
  Sender: FDA-Public Use
  Company Number: None

PATIENT
  Age: 72 Year
  Sex: Female
  Weight: 60.3 kg

DRUGS (7)
  1. PAXLOVID [Suspect]
     Active Substance: NIRMATRELVIR\RITONAVIR
     Indication: COVID-19
     Dosage: FREQUENCY : TWICE A DAY;?
     Route: 048
     Dates: start: 20221001, end: 20221003
  2. OMEGA 3 [Concomitant]
     Active Substance: CAPSAICIN
     Dates: start: 20120101
  3. Gastrofiber [Concomitant]
     Dates: start: 20120101, end: 20221001
  4. Super Biotic [Concomitant]
     Dates: start: 20120101, end: 20221001
  5. Herbal Equilibrium [Concomitant]
     Dates: start: 20120101, end: 20221001
  6. VITAMIN E [Concomitant]
     Active Substance: .ALPHA.-TOCOPHEROL
     Dates: start: 20120101
  7. T-Balance [Concomitant]
     Dates: start: 20120101, end: 20221001

REACTIONS (3)
  - Fatigue [None]
  - Feeling abnormal [None]
  - Taste disorder [None]

NARRATIVE: CASE EVENT DATE: 20221001
